FAERS Safety Report 8560528-X (Version None)
Quarter: 2012Q3

REPORT INFORMATION
  Report Type: 
  Country: None (occurrence: None)
  Receive Date: 20120802
  Receipt Date: 20120726
  Transmission Date: 20120928
  Serious: Yes (Other)
  Sender: FDA-Public Use
  Company Number: JP-VERTEX PHARMACEUTICALS INC.-AE-2012-003188

PATIENT
  Age: 67 Year
  Sex: Male

DRUGS (15)
  1. TELAVIC (TELAPREVIR) [Suspect]
     Indication: HEPATITIS C
     Route: 048
     Dates: start: 20120224, end: 20120228
  2. DIOVAN [Concomitant]
     Route: 048
  3. REBETOL [Concomitant]
     Route: 048
     Dates: start: 20120327, end: 20120603
  4. LANSOPRAZOLE [Concomitant]
     Route: 048
     Dates: start: 20120224
  5. PETROLATUM SALICYLATE [Concomitant]
     Route: 061
     Dates: start: 20120224
  6. LASIX [Concomitant]
     Route: 048
  7. PEG-INTRON [Concomitant]
     Indication: HEPATITIS C
     Route: 058
     Dates: start: 20120224
  8. HUMALOG [Concomitant]
     Route: 058
  9. DOXAZOSIN MESYLATE [Concomitant]
     Route: 048
  10. REBETOL [Concomitant]
     Indication: HEPATITIS C
     Route: 048
     Dates: start: 20120224, end: 20120228
  11. ANTEBATE OINTMENT [Concomitant]
     Route: 061
     Dates: start: 20120224
  12. ASPIRIN [Concomitant]
     Route: 048
  13. NORVASC [Concomitant]
     Route: 048
  14. LOXONIN [Concomitant]
     Route: 048
     Dates: start: 20120224
  15. REBETOL [Concomitant]
     Route: 048
     Dates: start: 20120302, end: 20120326

REACTIONS (5)
  - NEUTROPHIL COUNT DECREASED [None]
  - DECREASED APPETITE [None]
  - ERYTHEMA [None]
  - NAUSEA [None]
  - DRUG ERUPTION [None]
